FAERS Safety Report 6135042-1 (Version None)
Quarter: 2009Q1

REPORT INFORMATION
  Report Type: 
  Country: None (occurrence: None)
  Receive Date: 20090327
  Receipt Date: 20090316
  Transmission Date: 20090719
  Serious: Yes (Other)
  Sender: FDA-Public Use
  Company Number: NL-PFIZER INC-2007034211

PATIENT

DRUGS (11)
  1. LYRICA [Suspect]
     Indication: POLYNEUROPATHY
     Dosage: 600MG DAILY
     Route: 048
     Dates: start: 20070330
  2. VIAGRA [Suspect]
     Indication: ERECTILE DYSFUNCTION
     Route: 048
  3. OXAZEPAM [Suspect]
  4. VITAMIN B-12 [Suspect]
     Indication: ENZYME INHIBITION
     Dosage: UNK
     Route: 030
  5. LANSOPRAZOLE [Concomitant]
     Route: 048
  6. NIFEDIPINE [Concomitant]
     Route: 048
  7. BISOPROLOL FUMARATE [Concomitant]
     Route: 048
  8. LANOXIN [Concomitant]
     Route: 048
  9. PRAVASTATIN [Concomitant]
     Route: 048
  10. ACENOCOUMAROL [Concomitant]
     Route: 048
  11. TEMAZEPAM [Concomitant]

REACTIONS (12)
  - ANORGASMIA [None]
  - CONSTIPATION [None]
  - DRUG ABUSE [None]
  - DRUG INEFFECTIVE [None]
  - DRY MOUTH [None]
  - DYSARTHRIA [None]
  - ERECTILE DYSFUNCTION [None]
  - FEELING DRUNK [None]
  - FLUID RETENTION [None]
  - MENTAL IMPAIRMENT [None]
  - NEURALGIA [None]
  - WEIGHT INCREASED [None]
